FAERS Safety Report 8729434 (Version 2)
Quarter: 2013Q3

REPORT INFORMATION
  Report Type: Spontaneous
  Country: US (occurrence: US)
  Receive Date: 20120817
  Receipt Date: 20130725
  Transmission Date: 20140515
  Serious: Yes (Hospitalization, Other)
  Sender: FDA-Public Use
  Company Number: US-FRI-1000037708

PATIENT
  Age: 50 Year
  Sex: Female

DRUGS (1)
  1. ARMOUR THYROID [Suspect]
     Indication: HYPOTHYROIDISM
     Dosage: 180 MG
     Route: 048
     Dates: end: 201203

REACTIONS (12)
  - Cholelithiasis [Recovered/Resolved]
  - Thyrotoxic crisis [Unknown]
  - Blood pressure increased [Recovered/Resolved]
  - Heart rate increased [Recovered/Resolved]
  - Chest pain [Recovered/Resolved]
  - Dyspnoea [Recovered/Resolved]
  - Gastrooesophageal reflux disease [Recovered/Resolved]
  - Hypoaesthesia [Recovered/Resolved]
  - Dizziness [Recovered/Resolved]
  - Exophthalmos [Recovered/Resolved]
  - Tremor [Recovered/Resolved]
  - Lacrimation increased [Recovered/Resolved]
